FAERS Safety Report 8380297 (Version 2)
Quarter: 2014Q1

REPORT INFORMATION
  Report Type: Spontaneous
  Country: GB (occurrence: GB)
  Receive Date: 20120131
  Receipt Date: 20140307
  Transmission Date: 20141002
  Serious: Yes (Life-Threatening, Other)
  Sender: FDA-Public Use
  Company Number: GB-PFIZER INC-2011299443

PATIENT
  Age: 31 Year
  Sex: Female
  Weight: 82 kg

DRUGS (4)
  1. EFEXOR XL [Suspect]
     Indication: DEPRESSION
     Dosage: 150 MG, DAILY
     Route: 048
     Dates: start: 200903
  2. LAMOTRIGINE [Concomitant]
     Dosage: 50 MG, 2X/DAY
     Route: 048
     Dates: start: 20100928
  3. LAMOTRIGINE [Concomitant]
     Dosage: 100 MG, 2X/DAY
     Route: 048
  4. TIBOLONE [Concomitant]
     Dosage: 2.5 MG, 1X/DAY
     Route: 048
     Dates: start: 20100928

REACTIONS (9)
  - Suicidal behaviour [Recovering/Resolving]
  - Paraesthesia [Recovering/Resolving]
  - Tinnitus [Recovering/Resolving]
  - Dizziness [Recovering/Resolving]
  - Tremor [Recovering/Resolving]
  - Emotional distress [Recovering/Resolving]
  - Anxiety [Recovering/Resolving]
  - Crying [Recovering/Resolving]
  - Drug ineffective [Recovering/Resolving]
